FAERS Safety Report 5959414-0 (Version None)
Quarter: 2008Q4

REPORT INFORMATION
  Report Type: 
  Country: None (occurrence: None)
  Receive Date: 20081120
  Receipt Date: 20080909
  Transmission Date: 20090506
  Serious: No
  Sender: FDA-Public Use
  Company Number: A0746601A

PATIENT
  Age: 3 Year
  Sex: Male

DRUGS (2)
  1. VERAMYST [Suspect]
     Dosage: 1SPR PER DAY
     Route: 045
     Dates: start: 20080501
  2. PREVACID [Concomitant]
     Route: 048

REACTIONS (5)
  - EYE SWELLING [None]
  - EYELID MARGIN CRUSTING [None]
  - HYPERSENSITIVITY [None]
  - IMMUNOLOGY TEST ABNORMAL [None]
  - NASAL CONGESTION [None]
